FAERS Safety Report 7650065-9 (Version None)
Quarter: 2011Q3

REPORT INFORMATION
  Report Type: 
  Country: None (occurrence: None)
  Receive Date: 20110802
  Receipt Date: 20110802
  Transmission Date: 20111222
  Serious: Yes (Other)
  Sender: FDA-Public Use
  Company Number: None

PATIENT
  Age: 69 Year
  Sex: Female
  Weight: 54.431 kg

DRUGS (1)
  1. LUNESTA [Suspect]
     Indication: INSOMNIA
     Dosage: 3 MG
     Route: 048
     Dates: start: 20110731, end: 20110801

REACTIONS (4)
  - ANXIETY [None]
  - DYSGEUSIA [None]
  - AGGRESSION [None]
  - DEPRESSION [None]
